FAERS Safety Report 7138655-3 (Version None)
Quarter: 2010Q4

REPORT INFORMATION
  Report Type: 
  Country: None (occurrence: None)
  Receive Date: 20101122
  Receipt Date: 20101112
  Transmission Date: 20110411
  Serious: Yes (Hospitalization, Other)
  Sender: FDA-Public Use
  Company Number: ZYD-10-AE-279

PATIENT
  Age: 74 Year
  Sex: Male

DRUGS (7)
  1. AMIODARONE 200MG TABLETS (ZYDUS) [Suspect]
     Indication: ARRHYTHMIA
     Dosage: 200MG-DAILY-ORAL
     Route: 048
  2. PROTONIX [Concomitant]
  3. CRESTOR [Concomitant]
  4. ZOLPIDEM [Concomitant]
  5. LASIX [Concomitant]
  6. MICARDIS [Concomitant]
  7. WARFARIN SODIUM [Concomitant]

REACTIONS (9)
  - AORTIC STENOSIS [None]
  - ATRIAL FIBRILLATION [None]
  - CHEST PAIN [None]
  - CHRONIC OBSTRUCTIVE PULMONARY DISEASE [None]
  - DYSPNOEA [None]
  - GASTROOESOPHAGEAL REFLUX DISEASE [None]
  - HAEMOPTYSIS [None]
  - MALAISE [None]
  - RENAL FAILURE [None]
